FAERS Safety Report 14678643 (Version 1)
Quarter: 2018Q1

REPORT INFORMATION
  Report Type: Spontaneous
  Country: FR (occurrence: FR)
  Receive Date: 20180326
  Receipt Date: 20180326
  Transmission Date: 20180509
  Serious: Yes (Other)
  Sender: FDA-Public Use
  Company Number: FR-MERCK KGAA-2044494

PATIENT
  Age: 49 Year
  Sex: Female
  Weight: 51 kg

DRUGS (1)
  1. NOVOTHYROX [Suspect]
     Active Substance: LEVOTHYROXINE SODIUM
     Indication: POST PROCEDURAL HYPOTHYROIDISM
     Route: 048
     Dates: start: 20170517

REACTIONS (38)
  - Discomfort [Not Recovered/Not Resolved]
  - Skin disorder [Not Recovered/Not Resolved]
  - Arthralgia [Not Recovered/Not Resolved]
  - Sleep disorder [None]
  - Cardiac disorder [None]
  - Bone pain [None]
  - Anxiety [None]
  - Feeling abnormal [None]
  - Decreased interest [None]
  - Libido decreased [None]
  - Social avoidant behaviour [None]
  - Headache [Not Recovered/Not Resolved]
  - Muscle spasms [Not Recovered/Not Resolved]
  - Alopecia [Not Recovered/Not Resolved]
  - Myalgia [None]
  - Asthenia [None]
  - Agitation [Not Recovered/Not Resolved]
  - Chest pain [Not Recovered/Not Resolved]
  - Stress [None]
  - Tension [None]
  - Gastrointestinal disorder [Not Recovered/Not Resolved]
  - Palpitations [None]
  - Major depression [None]
  - Eye disorder [None]
  - Disturbance in attention [None]
  - Ocular discomfort [None]
  - Insomnia [Not Recovered/Not Resolved]
  - Fatigue [Not Recovered/Not Resolved]
  - Paraesthesia [None]
  - Impaired driving ability [None]
  - Fibromyalgia [None]
  - Memory impairment [None]
  - Pain [None]
  - Depressed mood [None]
  - Hair growth rate abnormal [None]
  - Suicidal ideation [None]
  - Irritability [Not Recovered/Not Resolved]
  - Psychiatric symptom [None]

NARRATIVE: CASE EVENT DATE: 2017
